FAERS Safety Report 4511960-2 (Version None)
Quarter: 2004Q4

REPORT INFORMATION
  Report Type: 
  Country: None (occurrence: None)
  Receive Date: 20041123
  Receipt Date: 20041109
  Transmission Date: 20050328
  Serious: Yes (Other)
  Sender: FDA-Public Use
  Company Number: K200401745

PATIENT
  Sex: Female

DRUGS (1)
  1. LEVOXYL [Suspect]

REACTIONS (2)
  - COUGH [None]
  - RETCHING [None]
